FAERS Safety Report 19039395 (Version 1)
Quarter: 2021Q1

REPORT INFORMATION
  Report Type: Spontaneous
  Country: US (occurrence: US)
  Receive Date: 20210322
  Receipt Date: 20210322
  Transmission Date: 20210420
  Serious: No
  Sender: FDA-Public Use
  Company Number: US-BAYER-2021-101323

PATIENT
  Age: 69 Year

DRUGS (1)
  1. ALEVE [Suspect]
     Active Substance: NAPROXEN SODIUM
     Indication: SLEEP DISORDER
     Dosage: 1 DF, HS

REACTIONS (4)
  - Drug effective for unapproved indication [Unknown]
  - Insomnia [None]
  - Incorrect dose administered [None]
  - Gastric disorder [None]
